FAERS Safety Report 10775595 (Version 1)
Quarter: 2015Q1

REPORT INFORMATION
  Report Type: Spontaneous
  Country: GB (occurrence: None)
  Receive Date: 20150205
  Receipt Date: 20150205
  Transmission Date: 20150721
  Serious: Yes (Disabling, Other)
  Sender: FDA-Public Use
  Company Number: GB-DEXPHARM-20150027

PATIENT
  Age: 45 Year
  Sex: Female

DRUGS (3)
  1. OMEPRAZOLE. [Suspect]
     Active Substance: OMEPRAZOLE
     Indication: CHEST PAIN
     Dosage: 40 MG MILLIGRAM(S) EVERY DAYS?20MG MILLIGRAM(S)?SEP. DOSAGES / INTERVAL: 2 IN 1 DAYS ?
     Route: 048
     Dates: start: 20141119, end: 20141211
  2. CLERI MODULITE [Concomitant]
  3. IBUPROFEN. [Suspect]
     Active Substance: IBUPROFEN

REACTIONS (14)
  - Vision blurred [None]
  - Asthenia [None]
  - Heart rate decreased [None]
  - Abdominal distension [None]
  - Malaise [None]
  - Abdominal discomfort [None]
  - Disturbance in attention [None]
  - Dizziness [None]
  - Fatigue [None]
  - Decreased appetite [None]
  - Feeling abnormal [None]
  - Anxiety [None]
  - Sleep disorder [None]
  - Nausea [None]

NARRATIVE: CASE EVENT DATE: 20141119
